FAERS Safety Report 7733739-0 (Version None)
Quarter: 2011Q3

REPORT INFORMATION
  Report Type: 
  Country: None (occurrence: None)
  Receive Date: 20110907
  Receipt Date: 20110825
  Transmission Date: 20111222
  Serious: Yes (Hospitalization)
  Sender: FDA-Public Use
  Company Number: PHHO2010US13661

PATIENT
  Sex: Male

DRUGS (3)
  1. MYCOPHENOLATE MOFETIL [Concomitant]
     Dosage: UNK
     Dates: start: 20060415
  2. CYCLOSPORINE [Suspect]
     Indication: RENAL TRANSPLANT
     Dosage: 75MG/DAY
     Route: 048
     Dates: start: 20060416
  3. PREDNISONE [Concomitant]
     Dosage: UNK
     Dates: start: 20060416

REACTIONS (4)
  - NAUSEA [None]
  - HYPERVOLAEMIA [None]
  - VOMITING [None]
  - HYPONATRAEMIA [None]
